FAERS Safety Report 11703963 (Version 1)
Quarter: 2015Q4

REPORT INFORMATION
  Report Type: Spontaneous
  Country: US (occurrence: None)
  Receive Date: 20151105
  Receipt Date: 20151105
  Transmission Date: 20160304
  Serious: Yes (Life-Threatening, Hospitalization)
  Sender: FDA-Public Use
  Company Number: None

PATIENT
  Age: 44 Year
  Sex: Male
  Weight: 86.8 kg

DRUGS (12)
  1. ATORVASTATIN [Concomitant]
     Active Substance: ATORVASTATIN
  2. GABAPENTIN. [Concomitant]
     Active Substance: GABAPENTIN
  3. CANAGLIFLOZIN 300 MG JANSSEN [Suspect]
     Active Substance: CANAGLIFLOZIN
     Indication: TYPE 2 DIABETES MELLITUS
     Dosage: 1 PILL
     Route: 048
  4. AMLODIPINE [Concomitant]
     Active Substance: AMLODIPINE BESYLATE
  5. ADDERALL [Concomitant]
     Active Substance: AMPHETAMINE ASPARTATE\AMPHETAMINE SULFATE\DEXTROAMPHETAMINE SACCHARATE\DEXTROAMPHETAMINE SULFATE
  6. RISPERIDONE. [Concomitant]
     Active Substance: RISPERIDONE
  7. METFORMIN [Concomitant]
     Active Substance: METFORMIN HYDROCHLORIDE
  8. DULAGLUTIDE. [Concomitant]
     Active Substance: DULAGLUTIDE
  9. DEXILANT [Concomitant]
     Active Substance: DEXLANSOPRAZOLE
  10. ASPIRIN. [Concomitant]
     Active Substance: ASPIRIN
  11. GLIMEPIRIDE. [Concomitant]
     Active Substance: GLIMEPIRIDE
  12. VALIUM [Concomitant]
     Active Substance: DIAZEPAM

REACTIONS (3)
  - Ketoacidosis [None]
  - Dehydration [None]
  - Metabolic acidosis [None]

NARRATIVE: CASE EVENT DATE: 20151102
